FAERS Safety Report 9888174 (Version 1)
Quarter: 2014Q1

REPORT INFORMATION
  Report Type: Spontaneous
  Country: BR (occurrence: BR)
  Receive Date: 20140211
  Receipt Date: 20140211
  Transmission Date: 20141002
  Serious: Yes (Other)
  Sender: FDA-Public Use
  Company Number: BR-ASTRAZENECA-2014SE08485

PATIENT
  Age: 64 Year
  Sex: Female

DRUGS (8)
  1. NEXIUM [Suspect]
     Indication: GASTROOESOPHAGEAL REFLUX DISEASE
     Route: 048
     Dates: start: 201311, end: 20140202
  2. NEXIUM [Suspect]
     Indication: GASTROOESOPHAGEAL REFLUX DISEASE
     Route: 048
     Dates: start: 20140203
  3. CRESTOR [Suspect]
     Indication: BLOOD CHOLESTEROL INCREASED
     Route: 048
     Dates: start: 201311
  4. CYMBALTA [Concomitant]
     Dosage: DAILY
     Route: 048
     Dates: start: 201302
  5. LYRICA [Concomitant]
     Dosage: DAILY
     Route: 048
     Dates: start: 201302
  6. PURAN T4 [Concomitant]
     Dosage: DAILY
     Route: 048
  7. CALTRATE [Concomitant]
     Dosage: DAILY
     Route: 048
  8. GLIFAGE [Concomitant]
     Route: 048

REACTIONS (3)
  - Gastrooesophageal reflux disease [Recovered/Resolved]
  - Muscle spasms [Recovered/Resolved]
  - Off label use [Recovered/Resolved]
